FAERS Safety Report 19772372 (Version 4)
Quarter: 2021Q3

REPORT INFORMATION
  Report Type: Report from Study
  Country: DE (occurrence: DE)
  Receive Date: 20210831
  Receipt Date: 20210930
  Transmission Date: 20211014
  Serious: Yes (Hospitalization, Other)
  Sender: FDA-Public Use
  Company Number: DE-BRISTOL-MYERS SQUIBB COMPANY-BMS-2021-066403

PATIENT
  Age: 62 Year
  Sex: Male

DRUGS (23)
  1. ASPIRIN. [Concomitant]
     Active Substance: ASPIRIN
     Indication: CEREBROVASCULAR DISORDER
  2. SIMVASTATIN. [Concomitant]
     Active Substance: SIMVASTATIN
     Indication: METABOLIC DISORDER
     Dosage: 40 MILLIGRAM
     Route: 065
  3. RANOLAZINA [Concomitant]
     Active Substance: RANOLAZINE
     Indication: CARDIOVASCULAR DISORDER
     Dosage: 1000 MILLIGRAM
     Route: 065
  4. BUDESONID [Concomitant]
     Active Substance: BUDESONIDE
     Indication: LUNG DISORDER
     Dosage: 0.8 MILLIGRAM
     Route: 065
  5. NOVALGIN (METAMIZOLE SODIUM) [Concomitant]
     Active Substance: METAMIZOLE SODIUM
     Indication: NEOPLASM
     Dosage: UNK, PRN
     Route: 065
  6. ASPIRIN. [Concomitant]
     Active Substance: ASPIRIN
     Indication: CARDIOVASCULAR DISORDER
     Dosage: 100 MILLIGRAM
     Route: 065
  7. CANDESARTAN. [Concomitant]
     Active Substance: CANDESARTAN
     Indication: CARDIOVASCULAR DISORDER
     Dosage: 16 MILLIGRAM
     Route: 065
  8. RANOLAZINA [Concomitant]
     Active Substance: RANOLAZINE
     Indication: CEREBROVASCULAR DISORDER
  9. SALBUTAMOL [Concomitant]
     Active Substance: ALBUTEROL
     Indication: LUNG DISORDER
     Dosage: UNK, PRN
     Route: 065
  10. TORASEMID [Concomitant]
     Active Substance: TORSEMIDE
     Indication: OEDEMA
     Dosage: 20 MILLIGRAM
     Route: 065
     Dates: start: 20210603
  11. PREGABALIN. [Concomitant]
     Active Substance: PREGABALIN
     Indication: NEOPLASM
     Dosage: 100 MILLIGRAM
     Route: 065
     Dates: start: 20210705
  12. LACTULOSE. [Concomitant]
     Active Substance: LACTULOSE
     Indication: NEOPLASM
     Dosage: AS NEEDED
     Dates: start: 20210705
  13. HYDROMORPHONE [Concomitant]
     Active Substance: HYDROMORPHONE
     Dosage: 8 MILLIGRAM
     Route: 065
     Dates: end: 20210728
  14. NIVOLUMAB [Suspect]
     Active Substance: NIVOLUMAB
     Dosage: 400 MILLIGRAM
     Route: 065
     Dates: start: 20210312, end: 20210526
  15. IPILIMUMAB [Suspect]
     Active Substance: IPILIMUMAB
     Indication: RENAL CELL CARCINOMA
     Dosage: 1 MILLIGRAM/KILOGRAM, Q3WK
     Route: 042
     Dates: start: 20201216, end: 20210908
  16. IVABRADIN [Concomitant]
     Active Substance: IVABRADINE
     Indication: CEREBROVASCULAR DISORDER
  17. HYDROMORPHONE [Concomitant]
     Active Substance: HYDROMORPHONE
     Indication: NEOPLASM
     Dosage: 16 MILLIGRAM
     Route: 065
     Dates: end: 20210728
  18. CANDESARTAN. [Concomitant]
     Active Substance: CANDESARTAN
     Indication: CEREBROVASCULAR DISORDER
  19. IVABRADIN [Concomitant]
     Active Substance: IVABRADINE
     Indication: CARDIOVASCULAR DISORDER
     Dosage: 10 MILLIGRAM
     Route: 065
  20. NIVOLUMAB [Suspect]
     Active Substance: NIVOLUMAB
     Indication: RENAL CELL CARCINOMA
     Dosage: 3 MILLIGRAM/KILOGRAM, Q3WK
     Route: 042
     Dates: start: 20201216, end: 20210908
  21. HYDROCHLOROTHIAZIDE. [Concomitant]
     Active Substance: HYDROCHLOROTHIAZIDE
     Indication: CARDIOVASCULAR DISORDER
     Dosage: 25 MILLIGRAM
     Route: 065
  22. HYDROCHLOROTHIAZIDE. [Concomitant]
     Active Substance: HYDROCHLOROTHIAZIDE
     Indication: CEREBROVASCULAR DISORDER
  23. MOVICOL [MACROGOL 4000;POTASSIUM CHLORIDE;SODIUM BICARBONATE;SODIUM CH [Concomitant]
     Indication: NEOPLASM
     Dosage: 1 SACHET
     Route: 065
     Dates: start: 20210705

REACTIONS (14)
  - Hypocalcaemia [Unknown]
  - Blood thyroid stimulating hormone increased [Not Recovered/Not Resolved]
  - Device related infection [Recovered/Resolved]
  - Anaemia [Unknown]
  - Oedema [Unknown]
  - Dyspnoea [Unknown]
  - Intentional product use issue [Unknown]
  - Hypercalcaemia [Unknown]
  - Blood follicle stimulating hormone increased [Not Recovered/Not Resolved]
  - Tri-iodothyronine free decreased [Recovered/Resolved]
  - Osteolysis [Recovered/Resolved]
  - Fall [Recovered/Resolved]
  - Blood luteinising hormone increased [Not Recovered/Not Resolved]
  - Femoral neck fracture [Recovered/Resolved]

NARRATIVE: CASE EVENT DATE: 202105
